FAERS Safety Report 26163379 (Version 1)
Quarter: 2025Q4

REPORT INFORMATION
  Report Type: Report from Study
  Country: MY (occurrence: MY)
  Receive Date: 20251216
  Receipt Date: 20251216
  Transmission Date: 20260117
  Serious: Yes (Death)
  Sender: ALEXION PHARMACEUTICALS
  Company Number: MY-AstraZeneca-CH-01014803A

PATIENT
  Age: 50 Year
  Sex: Female

DRUGS (1)
  1. OSIMERTINIB [Suspect]
     Active Substance: OSIMERTINIB
     Indication: Lung neoplasm malignant
     Route: 061

REACTIONS (1)
  - Death [Fatal]

NARRATIVE: CASE EVENT DATE: 20251209
